FAERS Safety Report 23050794 (Version 2)
Quarter: 2023Q4

REPORT INFORMATION
  Report Type: Report from Study
  Country: US (occurrence: US)
  Receive Date: 20231010
  Receipt Date: 20231206
  Transmission Date: 20240109
  Serious: Yes (Other)
  Sender: FDA-Public Use
  Company Number: US-ARGENX-2023-ARGX-US002263

PATIENT

DRUGS (1)
  1. VYVGART [Suspect]
     Active Substance: EFGARTIGIMOD ALFA-FCAB
     Indication: Product used for unknown indication
     Dosage: UNK
     Route: 042

REACTIONS (5)
  - Sinus operation [Unknown]
  - Epistaxis [Unknown]
  - Asthenopia [Unknown]
  - Eye disorder [Unknown]
  - Diplopia [Unknown]

NARRATIVE: CASE EVENT DATE: 20231002
